FAERS Safety Report 25632647 (Version 1)
Quarter: 2025Q3

REPORT INFORMATION
  Report Type: Spontaneous
  Country: US (occurrence: US)
  Receive Date: 20250801
  Receipt Date: 20250801
  Transmission Date: 20251020
  Serious: Yes (Other)
  Sender: GRIFOLS
  Company Number: US-IGSA-BIG0031430

PATIENT
  Age: 72 Year
  Sex: Female

DRUGS (1)
  1. GAMUNEX-C [Suspect]
     Active Substance: HUMAN IMMUNOGLOBULIN G
     Indication: Blood immunoglobulin G decreased
     Dosage: 6 GRAM, Q.WK.
     Route: 058
     Dates: start: 20200113

REACTIONS (4)
  - Erythema [Recovering/Resolving]
  - Infusion site bruising [Recovering/Resolving]
  - Fatigue [Recovering/Resolving]
  - Infusion site swelling [Recovering/Resolving]

NARRATIVE: CASE EVENT DATE: 20240925
